FAERS Safety Report 15645805 (Version 1)
Quarter: 2018Q4

REPORT INFORMATION
  Report Type: Spontaneous
  Country: US (occurrence: US)
  Receive Date: 20181121
  Receipt Date: 20181121
  Transmission Date: 20190205
  Serious: Yes (Hospitalization)
  Sender: FDA-Public Use
  Company Number: PHHY2018US158528

PATIENT
  Age: 86 Year
  Sex: Female

DRUGS (3)
  1. PREDNISONE. [Suspect]
     Active Substance: PREDNISONE
     Indication: TEMPORAL ARTERITIS
     Dosage: 600 MG, QD
     Route: 065
  2. PREDNISONE. [Suspect]
     Active Substance: PREDNISONE
     Dosage: 50 MG, QD
     Route: 065
  3. PREDNISONE. [Suspect]
     Active Substance: PREDNISONE
     Dosage: 20 MG, QD
     Route: 065

REACTIONS (11)
  - Nodule [Recovering/Resolving]
  - Lymphadenopathy [Recovering/Resolving]
  - Rash erythematous [Recovering/Resolving]
  - Weight decreased [Unknown]
  - Fatigue [Unknown]
  - Asthenia [Recovering/Resolving]
  - Skin mass [Recovering/Resolving]
  - Skin plaque [Recovering/Resolving]
  - Mycobacterium chelonae infection [Recovering/Resolving]
  - Exercise tolerance decreased [Unknown]
  - Skin lesion [Recovering/Resolving]
